FAERS Safety Report 25933883 (Version 1)
Quarter: 2025Q4

REPORT INFORMATION
  Report Type: Spontaneous
  Country: CA (occurrence: CA)
  Receive Date: 20251017
  Receipt Date: 20251017
  Transmission Date: 20260117
  Serious: Yes (Hospitalization, Other)
  Sender: SANDOZ
  Company Number: CA-SANDOZ-SDZ2025CA076475

PATIENT
  Age: 67 Year
  Sex: Male

DRUGS (1)
  1. ADALIMUMAB [Suspect]
     Active Substance: ADALIMUMAB
     Indication: Crohn^s disease
     Dosage: 40 MG, Q2W
     Route: 058

REACTIONS (3)
  - Nephrolithiasis [Unknown]
  - Cystitis [Unknown]
  - Intentional dose omission [Unknown]
